FAERS Safety Report 6196666-9 (Version None)
Quarter: 2009Q2

REPORT INFORMATION
  Report Type: 
  Country: None (occurrence: None)
  Receive Date: 20090520
  Receipt Date: 20090513
  Transmission Date: 20091009
  Serious: Yes (Hospitalization)
  Sender: FDA-Public Use
  Company Number: B0573784A

PATIENT
  Sex: Male

DRUGS (1)
  1. AMOXICILLIN TRIHYDRATE [Suspect]
     Indication: TOOTH INFECTION
     Dosage: 1UNIT TWICE PER DAY
     Route: 048
     Dates: start: 20071210, end: 20071210

REACTIONS (8)
  - ACUTE GENERALISED EXANTHEMATOUS PUSTULOSIS [None]
  - CHILLS [None]
  - ECZEMA [None]
  - INFLAMMATION [None]
  - NEUTROPHILIA [None]
  - RASH MORBILLIFORM [None]
  - RASH PRURITIC [None]
  - SKIN EXFOLIATION [None]
